FAERS Safety Report 9392336 (Version 2)
Quarter: 2013Q4

REPORT INFORMATION
  Report Type: Spontaneous
  Country: GB (occurrence: GB)
  Receive Date: 20130710
  Receipt Date: 20131031
  Transmission Date: 20140711
  Serious: Yes (Hospitalization, Other)
  Sender: FDA-Public Use
  Company Number: GB-009507513-1307GBR002560

PATIENT
  Age: 52 Year
  Sex: Female
  Weight: 92 kg

DRUGS (3)
  1. SIMVASTATIN [Suspect]
     Dosage: UNK
     Route: 048
     Dates: start: 20121025, end: 20130214
  2. GLICLAZIDE [Concomitant]
     Dosage: UNKNOWN
     Dates: start: 20130416
  3. SODIUM BICARBONATE [Concomitant]
     Dosage: UNK
     Dates: start: 20130312, end: 20130322

REACTIONS (2)
  - Renal failure acute [Recovered/Resolved]
  - Rhabdomyolysis [Recovered/Resolved]
